FAERS Safety Report 6666864-6 (Version None)
Quarter: 2010Q1

REPORT INFORMATION
  Report Type: 
  Country: None (occurrence: None)
  Receive Date: 20100331
  Receipt Date: 20100318
  Transmission Date: 20100710
  Serious: Yes (Other)
  Sender: FDA-Public Use
  Company Number: 1000012708

PATIENT
  Age: 85 Year
  Sex: Female

DRUGS (1)
  1. MEMANTINE HCL [Suspect]
     Dosage: 20 MG (20 MG, 1 IN 1 D), ORAL
     Route: 048
     Dates: start: 20100101

REACTIONS (3)
  - CARDIAC DISORDER [None]
  - CONDITION AGGRAVATED [None]
  - OEDEMA PERIPHERAL [None]
